FAERS Safety Report 7861466-8 (Version None)
Quarter: 2011Q4

REPORT INFORMATION
  Report Type: 
  Country: None (occurrence: None)
  Receive Date: 20111027
  Receipt Date: 20111020
  Transmission Date: 20120403
  Serious: Yes (Other)
  Sender: FDA-Public Use
  Company Number: JP-PFIZER INC-2011252686

PATIENT
  Sex: Female

DRUGS (1)
  1. ZYVOX [Suspect]
     Route: 048

REACTIONS (1)
  - DEPRESSED LEVEL OF CONSCIOUSNESS [None]
